FAERS Safety Report 9375080 (Version 2)
Quarter: 2013Q3

REPORT INFORMATION
  Report Type: Report from Study
  Country: CA (occurrence: CA)
  Receive Date: 20130628
  Receipt Date: 20130919
  Transmission Date: 20140515
  Serious: Yes (Other)
  Sender: FDA-Public Use
  Company Number: CA-JNJFOC-20130520150

PATIENT
  Age: 34 Year
  Sex: Female
  Weight: 68.04 kg

DRUGS (11)
  1. REMICADE [Suspect]
     Indication: IRIDOCYCLITIS
     Dosage: V1: DOSE REPORTED AS 5 MG/KG
     Route: 042
     Dates: start: 20130521
  2. REMICADE [Suspect]
     Indication: IRIDOCYCLITIS
     Dosage: 250CC
     Route: 042
     Dates: start: 20120618
  3. REMICADE [Suspect]
     Indication: COLITIS ULCERATIVE
     Dosage: 250CC
     Route: 042
     Dates: start: 20120618
  4. REMICADE [Suspect]
     Indication: COLITIS ULCERATIVE
     Dosage: V1: DOSE REPORTED AS 5 MG/KG
     Route: 042
     Dates: start: 20130521
  5. REMICADE [Suspect]
     Indication: ANKYLOSING SPONDYLITIS
     Dosage: V1: DOSE REPORTED AS 5 MG/KG
     Route: 042
     Dates: start: 20130521
  6. REMICADE [Suspect]
     Indication: ANKYLOSING SPONDYLITIS
     Dosage: 250CC
     Route: 042
     Dates: start: 20120618
  7. PANTOLOC [Concomitant]
     Route: 065
  8. SALOFALK [Concomitant]
     Route: 065
  9. TYLENOL [Concomitant]
     Indication: ARTHRITIS
     Route: 065
  10. STATEX [Concomitant]
     Route: 065
  11. METHOTREXATE [Concomitant]
     Route: 065
     Dates: start: 2013

REACTIONS (10)
  - Anaphylactic reaction [Unknown]
  - Palpitations [Recovered/Resolved]
  - Tachycardia [Recovered/Resolved]
  - Face oedema [Recovered/Resolved]
  - Dyspnoea [Recovered/Resolved]
  - Hypotension [Recovered/Resolved]
  - Chest pain [Recovered/Resolved]
  - Infusion related reaction [Unknown]
  - Bronchospasm [Recovered/Resolved]
  - Off label use [Recovered/Resolved]
